FAERS Safety Report 15063813 (Version 1)
Quarter: 2018Q2

REPORT INFORMATION
  Report Type: Report from Study
  Country: US (occurrence: US)
  Receive Date: 20180625
  Receipt Date: 20180625
  Transmission Date: 20180711
  Serious: No
  Sender: FDA-Public Use
  Company Number: US-AMGEN-USASL2016051648

PATIENT
  Age: 61 Year
  Sex: Female

DRUGS (1)
  1. REPATHA [Suspect]
     Active Substance: EVOLOCUMAB
     Indication: TYPE V HYPERLIPIDAEMIA
     Dosage: 140 MG, Q2WK
     Route: 065
     Dates: start: 201511

REACTIONS (7)
  - Injection site bruising [Not Recovered/Not Resolved]
  - Injection site pain [Unknown]
  - Anxiety [Unknown]
  - Inappropriate schedule of drug administration [Unknown]
  - Injection site discomfort [Unknown]
  - Injection site haemorrhage [Not Recovered/Not Resolved]
  - Device issue [Unknown]

NARRATIVE: CASE EVENT DATE: 201602
